FAERS Safety Report 6078492-4 (Version None)
Quarter: 2009Q1

REPORT INFORMATION
  Report Type: 
  Country: None (occurrence: None)
  Receive Date: 20090211
  Receipt Date: 20090211
  Transmission Date: 20090719
  Serious: Yes (Life-Threatening)
  Sender: FDA-Public Use
  Company Number: None

PATIENT
  Age: 57 Year
  Sex: Female
  Weight: 54.4316 kg

DRUGS (2)
  1. FOOD LION NASAL SPRAY EXTRA MOISTURINZING FOOD LION, LLC [Suspect]
     Indication: BRONCHITIS
     Dosage: 1 SPRAY IN EACH NOSTRIL ONE TIME ONLY NASAL
     Route: 045
     Dates: start: 20081120, end: 20081120
  2. FOOD LION NASAL SPRAY EXTRA MOISTURINZING FOOD LION, LLC [Suspect]
     Indication: DYSPNOEA
     Dosage: 1 SPRAY IN EACH NOSTRIL ONE TIME ONLY NASAL
     Route: 045
     Dates: start: 20081120, end: 20081120

REACTIONS (4)
  - AGEUSIA [None]
  - ANOSMIA [None]
  - BURNING SENSATION [None]
  - INJURY [None]
